FAERS Safety Report 5463011-3 (Version None)
Quarter: 2007Q3

REPORT INFORMATION
  Report Type: 
  Country: None (occurrence: None)
  Receive Date: 20070918
  Receipt Date: 20070918
  Transmission Date: 20080115
  Serious: Yes (Other)
  Sender: FDA-Public Use
  Company Number: None

PATIENT
  Sex: Male

DRUGS (13)
  1. REVLIMID [Suspect]
     Indication: MULTIPLE MYELOMA
     Dosage: 20MG DAILY 21D/28D PO
     Route: 048
  2. CELLCEPT [Concomitant]
  3. OMEPRAZOLE [Concomitant]
  4. FLOMAX [Concomitant]
  5. FENTANYL TRANSDERMAL SYSTEM [Concomitant]
  6. HYDROMORPHONE HCL [Concomitant]
  7. PROCRIT [Concomitant]
  8. FLUOXETINE [Concomitant]
  9. METFORMIN [Concomitant]
  10. DEXAMETHASONE 0.5MG TAB [Concomitant]
  11. PROSCAR [Concomitant]
  12. MEGESTROL ACETATE [Concomitant]
  13. GLYBURIDE [Concomitant]

REACTIONS (4)
  - LEUKOPENIA [None]
  - PANCYTOPENIA [None]
  - PURPURA [None]
  - THROMBOCYTOPENIA [None]
